FAERS Safety Report 9868572 (Version 3)
Quarter: 2014Q1

REPORT INFORMATION
  Report Type: Spontaneous
  Country: US (occurrence: US)
  Receive Date: 20140204
  Receipt Date: 20140228
  Transmission Date: 20141002
  Serious: No
  Sender: FDA-Public Use
  Company Number: US-PFIZER INC-2014031062

PATIENT
  Age: 71 Year
  Sex: Male
  Weight: 47.62 kg

DRUGS (3)
  1. LYRICA [Suspect]
     Indication: PAIN IN EXTREMITY
     Dosage: 150 MG, 1X/DAY (TWO CAPSULES OF 75MG)
     Route: 048
  2. LYRICA [Suspect]
     Indication: LOCAL SWELLING
     Dosage: 225 MG, DAILY (THREE CAPSULES OF 75MG)
  3. SINEMET [Concomitant]
     Indication: PARKINSON^S DISEASE
     Dosage: 2 DF, 5X/DAY (TWO TABLETS FIVE TIMES IN A DAY)
     Route: 048

REACTIONS (6)
  - Drug ineffective [Unknown]
  - Product packaging issue [Unknown]
  - Clumsiness [Unknown]
  - Dry mouth [Unknown]
  - Rash macular [Unknown]
  - Rash [Unknown]
